FAERS Safety Report 7144606-8 (Version None)
Quarter: 2010Q4

REPORT INFORMATION
  Report Type: 
  Country: None (occurrence: None)
  Receive Date: 20101119
  Receipt Date: 20091214
  Transmission Date: 20110411
  Serious: Yes (Other)
  Sender: FDA-Public Use
  Company Number: UTC-000752

PATIENT
  Age: 41 Year
  Sex: Female
  Weight: 129.3 kg

DRUGS (11)
  1. TYVASO [Suspect]
     Indication: PULMONARY ARTERIAL HYPERTENSION
     Dosage: (18 MCG, 1 D), INHALATION
     Route: 055
     Dates: start: 20091203, end: 20091203
  2. TYVASO [Suspect]
     Indication: PULMONARY ARTERIAL HYPERTENSION
     Dosage: (18 MCG, 1 D), INHALATION
     Route: 055
     Dates: start: 20091208
  3. COUMADIN [Concomitant]
  4. REVATIO [Concomitant]
  5. OXYGEN (OXYGEN) [Concomitant]
  6. SPIRONOLACTONE [Concomitant]
  7. LASIX [Concomitant]
  8. COREG [Concomitant]
  9. PLAQUENIL [Concomitant]
  10. LISINOPRIL [Concomitant]
  11. OMEPRAZOLE [Concomitant]

REACTIONS (1)
  - HAEMOPTYSIS [None]
